FAERS Safety Report 4331474-2 (Version None)
Quarter: 2004Q1

REPORT INFORMATION
  Report Type: 
  Country: None (occurrence: None)
  Receive Date: 20040329
  Receipt Date: 20040316
  Transmission Date: 20041129
  Serious: Yes (Hospitalization, Other)
  Sender: FDA-Public Use
  Company Number: 2004004444

PATIENT
  Age: 67 Year
  Sex: Female
  Weight: 136.0791 kg

DRUGS (16)
  1. TIKOSYN (DOFETILIDE) [Suspect]
     Indication: ATRIAL FIBRILLATION
     Dosage: 500 MCG (BID), ORAL
     Route: 048
  2. DIGOXIN [Suspect]
     Indication: HEART RATE INCREASED
     Dosage: 0.25 MG (DAILY), ORAL
     Route: 048
     Dates: start: 20030401
  3. NAFCILLIN (NAFCILLIN) [Suspect]
     Indication: CELLULITIS
     Dosage: INTRAVENOUS
     Route: 042
     Dates: start: 20030801, end: 20030101
  4. PREDNISONE [Suspect]
     Indication: ASTHMA
     Dosage: 10 MG (DAILY), ORAL
     Route: 048
     Dates: start: 19890101
  5. POTASSIUM CHLORIDE [Suspect]
     Indication: BLOOD POTASSIUM
     Dosage: 40 MEQ (BID), ORAL
     Route: 048
  6. TRIAMCINOLONE ACETONIDE [Concomitant]
  7. SALBUTAMOL (SALBUTAMOL) [Concomitant]
  8. AMLODIPINE BESYLATE [Concomitant]
  9. FUROSEMIDE [Concomitant]
  10. WARFARIN SODIUM [Concomitant]
  11. LOSARTAN POTASSIUM (LOSARTAN POTASSIUM) [Concomitant]
  12. CLONIDINE [Concomitant]
  13. VICODIN [Concomitant]
  14. OXYGEN (OXYGEN) [Concomitant]
  15. ALL OTHER THERAPEUTIC PRODUCTS [Concomitant]
  16. SPIRONOLACTONE [Concomitant]

REACTIONS (16)
  - ATRIAL FIBRILLATION [None]
  - BLOOD PRESSURE DECREASED [None]
  - CELLULITIS [None]
  - CONDITION AGGRAVATED [None]
  - DIABETES MELLITUS NON-INSULIN-DEPENDENT [None]
  - DYSPHAGIA [None]
  - FULL BLOOD COUNT DECREASED [None]
  - HEART RATE INCREASED [None]
  - HYPOKALAEMIA [None]
  - MEDICATION ERROR [None]
  - NAUSEA [None]
  - PALPITATIONS [None]
  - RENAL FUNCTION TEST ABNORMAL [None]
  - STOMACH DISCOMFORT [None]
  - UNEXPECTED THERAPEUTIC DRUG EFFECT [None]
  - WEIGHT INCREASED [None]
